FAERS Safety Report 19739177 (Version 2)
Quarter: 2021Q3

REPORT INFORMATION
  Report Type: Spontaneous
  Country: US (occurrence: US)
  Receive Date: 20210824
  Receipt Date: 20210929
  Transmission Date: 20211014
  Serious: Yes (Other)
  Sender: FDA-Public Use
  Company Number: US-PFIZER INC-202101039323

PATIENT
  Age: 35 Year
  Sex: Female
  Weight: 149.66 kg

DRUGS (29)
  1. FAMOTIDINE. [Concomitant]
     Active Substance: FAMOTIDINE
     Dosage: 1 DF, 2X/DAY
     Route: 048
     Dates: start: 20180508
  2. CHLORPROMAZINE. [Concomitant]
     Active Substance: CHLORPROMAZINE
     Dosage: 1 AND HALF DF AT BEDTIME AS NEEDED
     Route: 048
     Dates: start: 20200331
  3. XELJANZ [Suspect]
     Active Substance: TOFACITINIB CITRATE
     Dosage: 5 MG, 2X/DAY
     Route: 048
     Dates: start: 20200331
  4. LEVOTHYROXINE. [Concomitant]
     Active Substance: LEVOTHYROXINE
     Dosage: 1 DF, 1X/DAY
     Route: 048
     Dates: start: 20180508
  5. PROMETHAZINE [Concomitant]
     Active Substance: PROMETHAZINE HYDROCHLORIDE
     Dosage: 1 DF, AS NEEDED
     Route: 048
     Dates: start: 20180508
  6. TIZANIDINE. [Concomitant]
     Active Substance: TIZANIDINE
     Dosage: 1 DF, EVERY EIGHT HOURS AS NEEDED
     Route: 048
     Dates: start: 20180508
  7. RETIN?A [Concomitant]
     Active Substance: TRETINOIN
     Dosage: APPLY TO AFFECTED AREA
     Dates: start: 20200331
  8. XELJANZ [Suspect]
     Active Substance: TOFACITINIB CITRATE
     Dosage: 5 MG, 2X/DAY
     Route: 048
     Dates: start: 201811
  9. LYRICA [Concomitant]
     Active Substance: PREGABALIN
     Dosage: 1 DF, 3X/DAY
     Route: 048
  10. BALSALAZIDE [Concomitant]
     Active Substance: BALSALAZIDE
     Dosage: 3 DF, 3X/DAY
     Route: 048
     Dates: start: 20181112
  11. CLINDAMYCIN AND BENZOYL PEROXIDE [Concomitant]
     Active Substance: BENZOYL PEROXIDE\CLINDAMYCIN PHOSPHATE
     Dosage: APPLY AS DIRECTED
     Dates: start: 20210112
  12. XELJANZ [Suspect]
     Active Substance: TOFACITINIB CITRATE
     Indication: COLITIS ULCERATIVE
     Dosage: 10 MG, 2X/DAY
  13. XELJANZ [Suspect]
     Active Substance: TOFACITINIB CITRATE
     Dosage: 5 MG, 2X/DAY
     Route: 048
     Dates: start: 2019
  14. VITAMIN C [Concomitant]
     Active Substance: ASCORBIC ACID
     Dosage: 1 DF, 2X/DAY
     Route: 048
     Dates: start: 20180508
  15. LIDOCAINE. [Concomitant]
     Active Substance: LIDOCAINE
     Dosage: APPLY AS NEEDED
     Dates: start: 20180508
  16. PRAZOSIN. [Concomitant]
     Active Substance: PRAZOSIN
     Dosage: 1 DF, 3X/DAY
     Route: 048
     Dates: start: 20180508
  17. TOPIRAMATE. [Concomitant]
     Active Substance: TOPIRAMATE
     Dosage: 3 DF, 1X/DAY
     Route: 048
     Dates: start: 20180508
  18. OXYCODONE [Concomitant]
     Active Substance: OXYCODONE
     Indication: ARTHRALGIA
     Dosage: 35 MG, EVERY 2.5 ? 3 HOURS AS NEEDED
     Dates: start: 20200331
  19. DEXTROAMPHETAMINE [DEXAMFETAMINE] [Concomitant]
     Active Substance: DEXTROAMPHETAMINE
     Dosage: 1 DF, 2X/DAY
     Route: 048
  20. CALCIUM +D3 [Concomitant]
     Active Substance: CALCIUM\CHOLECALCIFEROL
     Dosage: 1 DF, 2X/DAY
     Route: 048
     Dates: start: 20180508
  21. DICYCLOMINE [Concomitant]
     Active Substance: DICYCLOMINE HYDROCHLORIDE
     Dosage: 1 DF, 1X/DAY
     Route: 048
     Dates: start: 20180807
  22. ZOLPIDEM [Concomitant]
     Active Substance: ZOLPIDEM TARTRATE
     Dosage: 1 DF, 1X/DAY
     Route: 048
     Dates: start: 20180508
  23. STOOL SOFTENER (DOCUSATE) [Concomitant]
     Active Substance: DOCUSATE
     Dosage: 1 DF, 3X/DAY
     Route: 048
     Dates: start: 20200331
  24. PLENVU [Concomitant]
     Active Substance: ASCORBIC ACID\POLYETHYLENE GLYCOL 3350\POTASSIUM CHLORIDE\SODIUM ASCORBATE\SODIUM CHLORIDE\SODIUM SULFATE
     Dosage: AS DIRECTED
     Dates: start: 20210423
  25. BUPROPION HCL [Concomitant]
     Active Substance: BUPROPION HYDROCHLORIDE
     Dosage: 1 DF, 2X/DAY
     Route: 048
  26. PANTOPRAZOLE [Concomitant]
     Active Substance: PANTOPRAZOLE
     Dosage: 1 DF, 1X/DAY
     Route: 048
     Dates: start: 20180808
  27. TRIAMCINOLONE ACETONIDE. [Concomitant]
     Active Substance: TRIAMCINOLONE ACETONIDE
     Dosage: APPLY TO AFFECTED AREA
     Dates: start: 20200331
  28. XYZAL [Concomitant]
     Active Substance: LEVOCETIRIZINE DIHYDROCHLORIDE
     Dosage: 1 DF, DAILY
     Route: 048
     Dates: start: 20200331
  29. OXYBUTYNIN CHLORIDE. [Concomitant]
     Active Substance: OXYBUTYNIN CHLORIDE
     Dosage: 1 DF, 1X/DAY
     Route: 048
     Dates: start: 20210112

REACTIONS (7)
  - Precancerous condition [Unknown]
  - Gastritis [Unknown]
  - Constipation [Unknown]
  - Therapeutic response unexpected [Recovering/Resolving]
  - Drug ineffective [Unknown]
  - Feeling abnormal [Unknown]
  - Polyp [Unknown]

NARRATIVE: CASE EVENT DATE: 20200331
